FAERS Safety Report 6297440-5 (Version None)
Quarter: 2009Q3

REPORT INFORMATION
  Report Type: 
  Country: None (occurrence: None)
  Receive Date: 20090805
  Receipt Date: 20090727
  Transmission Date: 20100115
  Serious: Yes (Hospitalization)
  Sender: FDA-Public Use
  Company Number: ES-JNJFOC-20090800726

PATIENT
  Age: 40 Year
  Sex: Female

DRUGS (1)
  1. KETOCONAZOLE [Suspect]
     Indication: ONYCHOMYCOSIS
     Route: 048

REACTIONS (1)
  - HEPATITIS ACUTE [None]
